FAERS Safety Report 7438481-1 (Version None)
Quarter: 2011Q2

REPORT INFORMATION
  Report Type: 
  Country: None (occurrence: None)
  Receive Date: 20110426
  Receipt Date: 20110422
  Transmission Date: 20111010
  Serious: Yes (Other)
  Sender: FDA-Public Use
  Company Number: JP-PFIZER INC-2009204298

PATIENT
  Age: 4 Year
  Sex: Male

DRUGS (1)
  1. SOMATROPIN [Suspect]
     Indication: SMALL FOR DATES BABY
     Dosage: 0.6 MG, 1X/DAY
     Dates: start: 20090407

REACTIONS (1)
  - ENTEROCOLITIS [None]
